FAERS Safety Report 4485348-7 (Version None)
Quarter: 2004Q3

REPORT INFORMATION
  Report Type: 
  Country: None (occurrence: None)
  Receive Date: 20040921
  Receipt Date: 20040505
  Transmission Date: 20050211
  Serious: Yes (Death, Hospitalization)
  Sender: FDA-Public Use
  Company Number: 163-20785-04050151

PATIENT
  Age: 62 Year
  Sex: Female
  Weight: 43 kg

DRUGS (3)
  1. THALOMID [Suspect]
     Indication: METASTASES TO CENTRAL NERVOUS SYSTEM
     Dosage: 400 MG, QHS, ORAL
     Route: 048
     Dates: start: 20040419, end: 20040422
  2. RADIATION [Suspect]
     Indication: METASTASES TO CENTRAL NERVOUS SYSTEM
     Dosage: 2.5 GY, QD
     Dates: start: 20040419
  3. DECADRON [Concomitant]

REACTIONS (6)
  - DEATH [None]
  - DISEASE PROGRESSION [None]
  - HYPOTENSION [None]
  - MULTI-ORGAN FAILURE [None]
  - PYREXIA [None]
  - SEPSIS [None]
